FAERS Safety Report 4281049-9 (Version None)
Quarter: 2004Q1

REPORT INFORMATION
  Report Type: 
  Country: None (occurrence: None)
  Receive Date: 20040123
  Receipt Date: 20030523
  Transmission Date: 20041129
  Serious: Yes (Other)
  Sender: FDA-Public Use
  Company Number: HQWYE351927MAY03

PATIENT
  Sex: Male
  Weight: 54.48 kg

DRUGS (1)
  1. CORDARONE [Suspect]
     Indication: VENTRICULAR TACHYCARDIA
     Dosage: 200 MG 2X PER 1 DAY, ORAL
     Route: 048

REACTIONS (2)
  - DRUG INEFFECTIVE [None]
  - VENTRICULAR TACHYCARDIA [None]
